FAERS Safety Report 18415191 (Version 1)
Quarter: 2020Q4

REPORT INFORMATION
  Report Type: Spontaneous
  Country: US (occurrence: US)
  Receive Date: 20201022
  Receipt Date: 20201022
  Transmission Date: 20210114
  Serious: Yes (Other)
  Sender: FDA-Public Use
  Company Number: None

PATIENT
  Age: 15 Year
  Sex: Male
  Weight: 52 kg

DRUGS (1)
  1. ETOPOSIDE. [Suspect]
     Active Substance: ETOPOSIDE
     Route: 042
     Dates: start: 20200924

REACTIONS (4)
  - Tachycardia [None]
  - Hyperhidrosis [None]
  - Unresponsive to stimuli [None]
  - Incontinence [None]

NARRATIVE: CASE EVENT DATE: 20200924
